FAERS Safety Report 5897260-7 (Version None)
Quarter: 2008Q3

REPORT INFORMATION
  Report Type: 
  Country: None (occurrence: None)
  Receive Date: 20080923
  Receipt Date: 20080908
  Transmission Date: 20090109
  Serious: Yes (Hospitalization)
  Sender: FDA-Public Use
  Company Number: 2008S1016329

PATIENT
  Age: 41 Year
  Sex: Female

DRUGS (3)
  1. CLARITHROMYCIN [Suspect]
     Indication: URINARY TRACT INFECTION
     Dosage: 500 MG; TWICE A DAY
  2. PAROXETINE HCL [Concomitant]
  3. DIAZEPAM [Concomitant]

REACTIONS (1)
  - MANIA [None]
